FAERS Safety Report 9060998 (Version 2)
Quarter: 2013Q1

REPORT INFORMATION
  Report Type: Report from Study
  Country: BE (occurrence: BE)
  Receive Date: 20130213
  Receipt Date: 20130314
  Transmission Date: 20140127
  Serious: Yes (Hospitalization)
  Sender: FDA-Public Use
  Company Number: BE-BIOGENIDEC-2013BI011646

PATIENT
  Age: 33 Year
  Sex: Male

DRUGS (14)
  1. AVONEX [Suspect]
     Indication: MULTIPLE SCLEROSIS
     Route: 030
     Dates: start: 20120307, end: 20130110
  2. LIORESAL (BACLOFEN) [Concomitant]
  3. MOTILIUM (DOMPERIDOM) [Concomitant]
     Indication: PRODUCT USED FOR UNKNOWN INDICATION
  4. LYRICA [Concomitant]
  5. LYRICA [Concomitant]
  6. CHAMPIX [Concomitant]
     Indication: TOBACCO ABUSE
  7. CONTRAMAL RETARD [Concomitant]
  8. COVERSYL PLUS [Concomitant]
  9. MAGNESIUM CARBONATE [Concomitant]
  10. AVAMYS [Concomitant]
  11. DAFALGAN [Concomitant]
  12. FORLAX [Concomitant]
  13. IBUPROFEN [Concomitant]
  14. VOLTAREN EMULGEL [Concomitant]
     Route: 061

REACTIONS (2)
  - Multiple sclerosis relapse [Unknown]
  - Hypertonic bladder [Unknown]
